FAERS Safety Report 13934244 (Version 1)
Quarter: 2017Q3

REPORT INFORMATION
  Report Type: Spontaneous
  Country: PL (occurrence: PL)
  Receive Date: 20170905
  Receipt Date: 20170905
  Transmission Date: 20171127
  Serious: Yes (Death)
  Sender: FDA-Public Use
  Company Number: PL-ROCHE-1988240

PATIENT
  Age: 27 Year
  Sex: Male
  Weight: 67 kg

DRUGS (3)
  1. HYDROCORTISONE. [Concomitant]
     Active Substance: HYDROCORTISONE
     Route: 065
  2. PERFALGAN [Concomitant]
     Active Substance: ACETAMINOPHEN
  3. MABTHERA [Suspect]
     Active Substance: RITUXIMAB
     Indication: ACUTE LYMPHOCYTIC LEUKAEMIA
     Dosage: 700 MG (VOLUME 570 ML)
     Route: 041
     Dates: start: 20170404, end: 20170404

REACTIONS (10)
  - Blood pressure decreased [Fatal]
  - Oxygen saturation decreased [Fatal]
  - Tachycardia [Fatal]
  - Hyperhidrosis [Fatal]
  - Abdominal discomfort [Fatal]
  - Altered state of consciousness [Fatal]
  - Rash [Fatal]
  - Cardiac arrest [Fatal]
  - Flatulence [Fatal]
  - Abdominal pain [Fatal]

NARRATIVE: CASE EVENT DATE: 20170404
